FAERS Safety Report 25713560 (Version 1)
Quarter: 2025Q3

REPORT INFORMATION
  Report Type: Spontaneous
  Country: US (occurrence: US)
  Receive Date: 20250822
  Receipt Date: 20250822
  Transmission Date: 20251021
  Serious: No
  Sender: MERCK SHARP & DOHME LLC
  Company Number: US-009507513-2313724

PATIENT
  Sex: Female
  Weight: 66.678 kg

DRUGS (14)
  1. WINREVAIR [Suspect]
     Active Substance: SOTATERCEPT-CSRK
  2. WINREVAIR [Suspect]
     Active Substance: SOTATERCEPT-CSRK
  3. WINREVAIR [Suspect]
     Active Substance: SOTATERCEPT-CSRK
  4. WINREVAIR [Suspect]
     Active Substance: SOTATERCEPT-CSRK
  5. Artificial tears [Concomitant]
  6. PREDNISOLONE ACETATE [Concomitant]
     Active Substance: PREDNISOLONE ACETATE
  7. Nasogel [Concomitant]
  8. POTASSIUM CHLORIDE [Concomitant]
     Active Substance: POTASSIUM CHLORIDE
  9. OPSUMIT [Concomitant]
     Active Substance: MACITENTAN
  10. MIDODRINE HYDROCHLORIDE [Concomitant]
     Active Substance: MIDODRINE HYDROCHLORIDE
  11. OXYGEN [Concomitant]
     Active Substance: OXYGEN
  12. BUMETANIDE [Concomitant]
     Active Substance: BUMETANIDE
  13. TYVASO DPI [Suspect]
     Active Substance: TREPROSTINIL
     Indication: Pulmonary arterial hypertension
     Dosage: 80  G (32  G + 48  G), FOUR TIMES A DAY (QID)
     Route: 055
     Dates: start: 20241028
  14. TYVASO DPI [Suspect]
     Active Substance: TREPROSTINIL
     Indication: Pulmonary arterial hypertension
     Dosage: 64  G (32  G + 32  G), QID
     Route: 055

REACTIONS (1)
  - Weight increased [Recovering/Resolving]
